FAERS Safety Report 18655297 (Version 3)
Quarter: 2021Q1

REPORT INFORMATION
  Report Type: Spontaneous
  Country: US (occurrence: US)
  Receive Date: 20201223
  Receipt Date: 20210108
  Transmission Date: 20210419
  Serious: No
  Sender: FDA-Public Use
  Company Number: US-PFIZER INC-2020503459

PATIENT
  Age: 77 Year
  Sex: Male
  Weight: 67.13 kg

DRUGS (3)
  1. VYNDAQEL [Suspect]
     Active Substance: TAFAMIDIS MEGLUMINE
     Indication: DYSPNOEA
     Dosage: 80 MG
  2. VYNDAQEL [Suspect]
     Active Substance: TAFAMIDIS MEGLUMINE
     Indication: AMYLOIDOSIS
  3. VYNDAQEL [Suspect]
     Active Substance: TAFAMIDIS MEGLUMINE
     Indication: CARDIAC DISORDER
     Dosage: 80 MG, 1X/DAY

REACTIONS (4)
  - Memory impairment [Unknown]
  - Product dose omission issue [Unknown]
  - Fatigue [Unknown]
  - Confusional state [Unknown]

NARRATIVE: CASE EVENT DATE: 202012
